APPROVED DRUG PRODUCT: METOPROLOL TARTRATE
Active Ingredient: METOPROLOL TARTRATE
Strength: 50MG
Dosage Form/Route: TABLET;ORAL
Application: A074380 | Product #001
Applicant: PUREPAC PHARMACEUTICAL CO
Approved: Jul 29, 1994 | RLD: No | RS: No | Type: DISCN